FAERS Safety Report 24987925 (Version 1)
Quarter: 2025Q1

REPORT INFORMATION
  Report Type: Spontaneous
  Country: PH (occurrence: PH)
  Receive Date: 20250219
  Receipt Date: 20250219
  Transmission Date: 20250408
  Serious: Yes (Other)
  Sender: MDD OPERATIONS
  Company Number: PH-ZAMBON-202500430COR

PATIENT
  Sex: Female

DRUGS (1)
  1. SAFINAMIDE [Suspect]
     Active Substance: SAFINAMIDE
     Indication: Product used for unknown indication
     Route: 048

REACTIONS (1)
  - Dystonia [Unknown]
